FAERS Safety Report 8249030-2 (Version None)
Quarter: 2012Q2

REPORT INFORMATION
  Report Type: 
  Country: None (occurrence: None)
  Receive Date: 20120402
  Receipt Date: 20120326
  Transmission Date: 20120825
  Serious: No
  Sender: FDA-Public Use
  Company Number: US-BIOGENIDEC-2012BI010730

PATIENT
  Sex: Female

DRUGS (2)
  1. AVONEX [Suspect]
     Indication: MULTIPLE SCLEROSIS
     Route: 030
     Dates: start: 20090705, end: 20100615
  2. AVONEX [Suspect]
     Route: 030
     Dates: start: 20100723, end: 20110530

REACTIONS (3)
  - DYSGRAPHIA [None]
  - TRIGEMINAL NEURALGIA [None]
  - ANXIETY [None]
